FAERS Safety Report 17057938 (Version 1)
Quarter: 2019Q4

REPORT INFORMATION
  Report Type: Spontaneous
  Country: US (occurrence: US)
  Receive Date: 20191022
  Receipt Date: 20191022
  Transmission Date: 20200122
  Serious: Yes (Death)
  Sender: FDA-Public Use
  Company Number: None

PATIENT
  Age: 74 Year
  Sex: Male

DRUGS (1)
  1. ETOPOSIDE. [Suspect]
     Active Substance: ETOPOSIDE
     Indication: SMALL CELL LUNG CANCER
     Dosage: ?          OTHER FREQUENCY:PM;?
     Route: 048
     Dates: start: 20190807, end: 20190809

REACTIONS (3)
  - Sepsis [None]
  - Neutropenic infection [None]
  - Leukopenia [None]

NARRATIVE: CASE EVENT DATE: 20190815
